FAERS Safety Report 17651054 (Version 1)
Quarter: 2020Q2

REPORT INFORMATION
  Report Type: Spontaneous
  Country: CA (occurrence: CA)
  Receive Date: 20200409
  Receipt Date: 20200409
  Transmission Date: 20200713
  Serious: Yes (Hospitalization)
  Sender: FDA-Public Use
  Company Number: CA-TEVA-2020-CA-1220903

PATIENT
  Age: 64 Year
  Sex: Male

DRUGS (6)
  1. PFIZER SOLU MEDROL [Concomitant]
     Route: 042
     Dates: start: 202003
  2. INFLECTRA PFIZER [Concomitant]
     Indication: CROHN^S DISEASE
     Route: 042
     Dates: start: 20200323
  3. PFIZER ATORVASTATIN [Concomitant]
     Route: 065
  4. PREDNISONE. [Suspect]
     Active Substance: PREDNISONE
     Route: 065
  5. NICODERM CQ [Concomitant]
     Active Substance: NICOTINE
     Dosage: 21 MILLIGRAM DAILY;
     Route: 062
  6. NICORETTE [Concomitant]
     Active Substance: NICOTINE
     Route: 048

REACTIONS (2)
  - C-reactive protein increased [Not Recovered/Not Resolved]
  - Drug ineffective [Unknown]

NARRATIVE: CASE EVENT DATE: 20200317
